FAERS Safety Report 13557002 (Version 3)
Quarter: 2017Q2

REPORT INFORMATION
  Report Type: Spontaneous
  Country: IT (occurrence: IT)
  Receive Date: 20170518
  Receipt Date: 20170614
  Transmission Date: 20170830
  Serious: Yes (Other)
  Sender: FDA-Public Use
  Company Number: IT-ASTRAZENECA-2017SE52365

PATIENT
  Age: 26840 Day
  Sex: Female

DRUGS (5)
  1. FASLODEX [Suspect]
     Active Substance: FULVESTRANT
     Dosage: 500, UNKNOWN
     Route: 030
     Dates: start: 20170115
  2. ACTONEL [Concomitant]
     Active Substance: RISEDRONATE SODIUM
  3. DIBASE [Concomitant]
     Active Substance: CHOLECALCIFEROL
     Dosage: 50.000 IU ONE VIAL MONTHLY
  4. TRIATEC [Concomitant]
     Active Substance: RAMIPRIL
     Dosage: 2.5 MG
  5. PANTORC [Concomitant]
     Active Substance: PANTOPRAZOLE SODIUM

REACTIONS (5)
  - Throat tightness [Unknown]
  - Injection site oedema [Unknown]
  - Erythema [Unknown]
  - Dyspnoea [Unknown]
  - Laryngeal oedema [Unknown]

NARRATIVE: CASE EVENT DATE: 20170427
